FAERS Safety Report 7650198-7 (Version None)
Quarter: 2011Q3

REPORT INFORMATION
  Report Type: 
  Country: None (occurrence: None)
  Receive Date: 20110802
  Receipt Date: 20110728
  Transmission Date: 20111222
  Serious: Yes (Hospitalization)
  Sender: FDA-Public Use
  Company Number: BR-ROCHE-791726

PATIENT
  Age: 61 Year
  Sex: Male
  Weight: 88 kg

DRUGS (8)
  1. UNSPECIFIED MEDICATION [Concomitant]
  2. CLONAZEPAM [Suspect]
     Indication: CONVULSION
     Dosage: DOSE: 0.5MG/TAB
     Route: 048
     Dates: start: 20010101
  3. DORMONID (ORAL) [Suspect]
     Route: 065
     Dates: start: 20110720
  4. DORMONID (ORAL) [Suspect]
     Dosage: 2 TABLET AT ONCE
     Route: 065
     Dates: start: 20030101
  5. DORMONID (ORAL) [Suspect]
     Route: 065
     Dates: start: 20080101
  6. UNSPECIFIED MEDICATION [Concomitant]
     Indication: TACHYCARDIA
  7. UNSPECIFIED MEDICATION [Concomitant]
     Indication: HYPERTENSION
  8. UNSPECIFIED MEDICATION [Concomitant]
     Indication: FIBROMYALGIA

REACTIONS (4)
  - DYSKINESIA [None]
  - DRUG ADMINISTRATION ERROR [None]
  - DEPENDENCE [None]
  - CONVULSION [None]
